FAERS Safety Report 5064643-7 (Version None)
Quarter: 2006Q3

REPORT INFORMATION
  Report Type: 
  Country: None (occurrence: None)
  Receive Date: 20060728
  Receipt Date: 20060622
  Transmission Date: 20061208
  Serious: Yes (Other)
  Sender: FDA-Public Use
  Company Number: US-ROCHE-452821

PATIENT
  Sex: Female

DRUGS (1)
  1. BONIVA [Suspect]
     Indication: DRUG USE FOR UNKNOWN INDICATION
     Dosage: DOSAGE REGIMEN: 150 MG/MONTH
     Route: 048
     Dates: start: 20051115

REACTIONS (3)
  - GASTROINTESTINAL PAIN [None]
  - LARGE INTESTINAL ULCER [None]
  - MUSCLE SPASMS [None]
